FAERS Safety Report 6158283-6 (Version None)
Quarter: 2009Q2

REPORT INFORMATION
  Report Type: 
  Country: None (occurrence: None)
  Receive Date: 20090417
  Receipt Date: 20090415
  Transmission Date: 20091009
  Serious: Yes (Other)
  Sender: FDA-Public Use
  Company Number: US-ROXANE LABORATORIES, INC.-2009-RO-00381RO

PATIENT
  Age: 52 Year
  Sex: Male

DRUGS (3)
  1. HYDROMORPHONE HCL [Suspect]
     Indication: BACK PAIN
     Dosage: 19.8MG
     Route: 037
  2. MORPHINE [Suspect]
     Indication: BACK PAIN
     Route: 037
  3. ORAL ANALGESICS [Concomitant]
     Indication: PAIN
     Route: 048

REACTIONS (3)
  - DRUG INEFFECTIVE [None]
  - GRANULOMA [None]
  - HYPOAESTHESIA [None]
